FAERS Safety Report 17690053 (Version 4)
Quarter: 2022Q2

REPORT INFORMATION
  Report Type: Report from Study
  Country: None (occurrence: IT)
  Receive Date: 20200421
  Receipt Date: 20220413
  Transmission Date: 20220721
  Serious: Yes (Hospitalization)
  Sender: FDA-Public Use
  Company Number: IT-AKCEA THERAPEUTICS-2020IS001148

PATIENT
  Sex: Male
  Weight: 80.182 kg

DRUGS (2)
  1. TEGSEDI [Suspect]
     Active Substance: INOTERSEN SODIUM
     Indication: Familial amyloidosis
     Route: 058
     Dates: start: 20191127, end: 20200401
  2. DEVICE [Suspect]
     Active Substance: DEVICE

REACTIONS (4)
  - Glomerulonephritis acute [Recovering/Resolving]
  - Oedema [Recovering/Resolving]
  - Proteinuria [Not Recovered/Not Resolved]
  - Nephrotic syndrome [Recovering/Resolving]

NARRATIVE: CASE EVENT DATE: 20200401
